FAERS Safety Report 8078345-6 (Version None)
Quarter: 2012Q1

REPORT INFORMATION
  Report Type: 
  Country: None (occurrence: None)
  Receive Date: 20120123
  Receipt Date: 20120109
  Transmission Date: 20120608
  Serious: Yes (Death)
  Sender: FDA-Public Use
  Company Number: JPI-P-005539

PATIENT
  Age: 54 Year
  Sex: Male

DRUGS (8)
  1. UNSPECIFIED SEDATIVE-HYPNOTIC [Suspect]
     Indication: PRODUCT USED FOR UNKNOWN INDICATION
     Dates: end: 20081009
  2. UNSPECIFIED PSYCHOTROPIC [Suspect]
     Indication: PRODUCT USED FOR UNKNOWN INDICATION
     Dates: end: 20081009
  3. XYREM [Suspect]
     Indication: PRODUCT USED FOR UNKNOWN INDICATION
     Dosage: 4.5; 9 GM (2.25 GM; 4.5 GM, 2 IN 1 D), ORAL
     Route: 048
     Dates: start: 20030505, end: 20081009
  4. XYREM [Suspect]
     Indication: PRODUCT USED FOR UNKNOWN INDICATION
     Dosage: 4.5; 9 GM (2.25 GM; 4.5 GM, 2 IN 1 D), ORAL
     Route: 048
     Dates: start: 20021011
  5. UNSPECIFIED ANTIEPILEPTIC [Suspect]
     Indication: PRODUCT USED FOR UNKNOWN INDICATION
     Dates: end: 20081009
  6. UNSPECIFIED ANTIPARKINSONISM) [Suspect]
     Indication: PRODUCT USED FOR UNKNOWN INDICATION
     Dates: end: 20081009
  7. TRICYCLIC AND TETRACYCLIC ANTIDEPRESSANTS [Suspect]
     Indication: PRODUCT USED FOR UNKNOWN INDICATION
     Dates: end: 20081009
  8. UNSPECIFIED ANTIDEPRESSANTS [Suspect]
     Indication: PRODUCT USED FOR UNKNOWN INDICATION
     Dates: end: 20081009

REACTIONS (2)
  - ACCIDENTAL POISONING [None]
  - ARRHYTHMIA [None]
